FAERS Safety Report 23727403 (Version 2)
Quarter: 2024Q2

REPORT INFORMATION
  Report Type: Spontaneous
  Country: ES (occurrence: ES)
  Receive Date: 20240410
  Receipt Date: 20240425
  Transmission Date: 20240715
  Serious: Yes (Hospitalization, Other)
  Sender: FDA-Public Use
  Company Number: None

PATIENT
  Age: 71 Year
  Sex: Male

DRUGS (6)
  1. TEDIZOLID PHOSPHATE [Interacting]
     Active Substance: TEDIZOLID PHOSPHATE
     Indication: Meningitis
     Dosage: 200 MILLIGRAM, QD
     Route: 042
     Dates: start: 20240216, end: 20240219
  2. LINEZOLID [Interacting]
     Active Substance: LINEZOLID
     Indication: Meningitis
     Dosage: 600 MILLIGRAM, Q12H
     Route: 042
     Dates: start: 20240215, end: 20240216
  3. TRAMADOL HYDROCHLORIDE [Interacting]
     Active Substance: TRAMADOL HYDROCHLORIDE
     Route: 048
     Dates: start: 20240215, end: 20240217
  4. CITALOPRAM [Interacting]
     Active Substance: CITALOPRAM\CITALOPRAM HYDROBROMIDE
     Indication: Mixed anxiety and depressive disorder
     Dosage: UNK
     Route: 048
     Dates: start: 2016, end: 20240219
  5. AMITRIPTYLINE HYDROCHLORIDE [Interacting]
     Active Substance: AMITRIPTYLINE HYDROCHLORIDE
     Indication: Trigeminal neuralgia
     Dosage: 25 MILLIGRAM, QD
     Route: 048
     Dates: start: 2010, end: 20240219
  6. PALEXIA [Interacting]
     Active Substance: TAPENTADOL HYDROCHLORIDE
     Route: 048
     Dates: start: 20240209, end: 20240215

REACTIONS (1)
  - Serotonin syndrome [Recovered/Resolved]

NARRATIVE: CASE EVENT DATE: 20240219
